FAERS Safety Report 18880347 (Version 2)
Quarter: 2021Q2

REPORT INFORMATION
  Report Type: Spontaneous
  Country: BR (occurrence: BR)
  Receive Date: 20210211
  Receipt Date: 20210409
  Transmission Date: 20210717
  Serious: No
  Sender: FDA-Public Use
  Company Number: BR-SA-2021SA020087

PATIENT
  Age: 84 Year
  Sex: Male

DRUGS (1)
  1. TOUJEO [Suspect]
     Active Substance: INSULIN GLARGINE
     Indication: DIABETES MELLITUS
     Dosage: 36 IU ONCE DAILY
     Route: 058
     Dates: start: 202011

REACTIONS (2)
  - Insomnia [Recovering/Resolving]
  - Hypersomnia [Recovering/Resolving]
